FAERS Safety Report 17841303 (Version 2)
Quarter: 2020Q2

REPORT INFORMATION
  Report Type: Report from Study
  Country: ID (occurrence: ID)
  Receive Date: 20200529
  Receipt Date: 20200611
  Transmission Date: 20200714
  Serious: Yes (Hospitalization, Other)
  Sender: FDA-Public Use
  Company Number: ID-SEATTLE GENETICS-2020SGN02092

PATIENT
  Sex: Male

DRUGS (1)
  1. BRENTUXIMAB VEDOTIN [Suspect]
     Active Substance: BRENTUXIMAB VEDOTIN
     Indication: HODGKIN^S DISEASE
     Dosage: 150 MILLIGRAM
     Route: 065
     Dates: start: 20190827

REACTIONS (4)
  - Neuropathy peripheral [Unknown]
  - Swelling [Unknown]
  - General physical health deterioration [Unknown]
  - Hodgkin^s disease [Unknown]
